FAERS Safety Report 12887169 (Version 4)
Quarter: 2016Q4

REPORT INFORMATION
  Report Type: Spontaneous
  Country: CN (occurrence: CN)
  Receive Date: 20161026
  Receipt Date: 20161121
  Transmission Date: 20170207
  Serious: Yes (Hospitalization)
  Sender: FDA-Public Use
  Company Number: CN-ASTRAZENECA-2016SF10561

PATIENT
  Age: 80 Year
  Sex: Female

DRUGS (21)
  1. BETALOC [Suspect]
     Active Substance: METOPROLOL TARTRATE
     Indication: CORONARY ARTERY DISEASE
     Dosage: 0.25DF UNKNOWN
     Route: 048
  2. BETALOC [Suspect]
     Active Substance: METOPROLOL TARTRATE
     Indication: CORONARY ARTERY DISEASE
     Dosage: 1/2 TAB IN THE MORNING AND 1/2 TAB IN THE EVENING UNKNOWN
     Route: 048
  3. BETALOC [Suspect]
     Active Substance: METOPROLOL TARTRATE
     Indication: HEART RATE INCREASED
     Dosage: 0.5DF UNKNOWN
     Route: 048
     Dates: start: 201607
  4. BETALOC ZOK [Suspect]
     Active Substance: METOPROLOL SUCCINATE
     Dosage: 11.875 MG (1/4 X 47.5 MG) TWO TIMES A DAY
     Route: 048
     Dates: start: 2016
  5. BETALOC [Suspect]
     Active Substance: METOPROLOL TARTRATE
     Indication: ATRIAL FIBRILLATION
     Dosage: 0.25DF UNKNOWN
     Route: 048
  6. ISOSORBIDE MONONITRATE. [Concomitant]
     Active Substance: ISOSORBIDE MONONITRATE
     Indication: CARDIAC DISORDER
  7. ANTIHYPERTENSIVES [Concomitant]
     Active Substance: UNSPECIFIED INGREDIENT
  8. BETALOC ZOK [Suspect]
     Active Substance: METOPROLOL SUCCINATE
     Route: 048
  9. BETALOC [Suspect]
     Active Substance: METOPROLOL TARTRATE
     Indication: CORONARY ARTERY DISEASE
     Dosage: 0.5DF UNKNOWN
     Route: 048
     Dates: start: 201607
  10. NORVASC [Concomitant]
     Active Substance: AMLODIPINE BESYLATE
  11. BETALOC [Suspect]
     Active Substance: METOPROLOL TARTRATE
     Indication: CORONARY ARTERY DISEASE
     Dosage: 0.5DF UNKNOWN
     Route: 048
  12. BETALOC [Suspect]
     Active Substance: METOPROLOL TARTRATE
     Indication: ATRIAL FIBRILLATION
     Dosage: 0.5DF UNKNOWN
     Route: 048
  13. BETALOC [Suspect]
     Active Substance: METOPROLOL TARTRATE
     Indication: CORONARY ARTERY DISEASE
     Dosage: 0.5DF UNKNOWN
     Route: 048
  14. BETALOC [Suspect]
     Active Substance: METOPROLOL TARTRATE
     Indication: HEART RATE INCREASED
     Dosage: 1/2 TAB IN THE MORNING AND 1/2 TAB IN THE EVENING UNKNOWN
     Route: 048
  15. BETALOC [Suspect]
     Active Substance: METOPROLOL TARTRATE
     Indication: ATRIAL FIBRILLATION
     Dosage: 0.5DF UNKNOWN
     Route: 048
     Dates: start: 201607
  16. BETALOC ZOK [Suspect]
     Active Substance: METOPROLOL SUCCINATE
     Route: 048
     Dates: start: 201607
  17. BETALOC [Suspect]
     Active Substance: METOPROLOL TARTRATE
     Indication: ATRIAL FIBRILLATION
     Dosage: 0.5DF UNKNOWN
     Route: 048
  18. BETALOC [Suspect]
     Active Substance: METOPROLOL TARTRATE
     Indication: HEART RATE INCREASED
     Dosage: 0.5DF UNKNOWN
     Route: 048
  19. BETALOC [Suspect]
     Active Substance: METOPROLOL TARTRATE
     Indication: HEART RATE INCREASED
     Dosage: 0.5DF UNKNOWN
     Route: 048
  20. BETALOC [Suspect]
     Active Substance: METOPROLOL TARTRATE
     Indication: HEART RATE INCREASED
     Dosage: 0.25DF UNKNOWN
     Route: 048
  21. BETALOC [Suspect]
     Active Substance: METOPROLOL TARTRATE
     Indication: ATRIAL FIBRILLATION
     Dosage: 1/2 TAB IN THE MORNING AND 1/2 TAB IN THE EVENING UNKNOWN
     Route: 048

REACTIONS (4)
  - Product substitution issue [Unknown]
  - Intentional product misuse [Unknown]
  - Atrial fibrillation [Recovered/Resolved]
  - Hypertension [Unknown]

NARRATIVE: CASE EVENT DATE: 2016
